FAERS Safety Report 5949477-0 (Version None)
Quarter: 2008Q4

REPORT INFORMATION
  Report Type: 
  Country: None (occurrence: None)
  Receive Date: 20081112
  Receipt Date: 20081104
  Transmission Date: 20090506
  Serious: Yes (Hospitalization, Other)
  Sender: FDA-Public Use
  Company Number: PHHY2008DE22363

PATIENT
  Sex: Male
  Weight: 76 kg

DRUGS (15)
  1. RASILEZ [Suspect]
     Indication: HYPERTENSION
     Dosage: 1 DF, QD
     Route: 048
     Dates: start: 20080117, end: 20080306
  2. RAMIPRIL [Concomitant]
  3. MYFORTIC [Concomitant]
     Dosage: 1 DF, QD2SDO
  4. URBASON                                 /GFR/ [Concomitant]
     Dosage: 0.25 DF,DAILY
  5. PLAVIX [Concomitant]
     Dosage: 0.5 DF DAILY
  6. OLMESARTAN MEDOXOMIL AND HYDROCHLOROTHIZIDE [Concomitant]
     Dosage: 2 DF, QD2SDO
  7. XANEF [Concomitant]
     Dosage: 2 DF, QD2SDO
  8. NEXIUM [Concomitant]
     Dosage: 1 DF, QD
  9. METOHEXAL [Concomitant]
     Dosage: 0.5 DF, QD
  10. ARANESP [Concomitant]
     Dosage: 1 DF, QW
     Route: 058
  11. BICANORM                           /01764101/ [Concomitant]
     Dosage: 2 DF, QID
  12. FLUVASTATIN [Concomitant]
     Dosage: 1 DF, QD
  13. NIASPAN [Concomitant]
     Dosage: 1 DF, QD
  14. ALLOPURINOL ^HEUMANN^ [Concomitant]
     Dosage: 1 DF, QD
  15. CYNT ^BEIERSDORF^ [Concomitant]
     Dosage: 1 DF, BID

REACTIONS (2)
  - BLOOD CREATININE INCREASED [None]
  - RENAL FAILURE CHRONIC [None]
